FAERS Safety Report 7431810-4 (Version None)
Quarter: 2011Q2

REPORT INFORMATION
  Report Type: 
  Country: None (occurrence: None)
  Receive Date: 20110422
  Receipt Date: 20110418
  Transmission Date: 20111010
  Serious: Yes (Death)
  Sender: FDA-Public Use
  Company Number: PHHY2011US14901

PATIENT
  Sex: Male
  Weight: 73.016 kg

DRUGS (2)
  1. EXJADE [Suspect]
     Indication: SERUM FERRITIN INCREASED
     Route: 048
     Dates: start: 20101208
  2. EXJADE [Suspect]
     Indication: ACUTE MYELOID LEUKAEMIA
     Dosage: 1500 MG, QD
     Route: 048

REACTIONS (2)
  - LIMB INJURY [None]
  - NEOPLASM MALIGNANT [None]
